FAERS Safety Report 6941382-6 (Version None)
Quarter: 2010Q3

REPORT INFORMATION
  Report Type: 
  Country: None (occurrence: None)
  Receive Date: 20100825
  Receipt Date: 20100820
  Transmission Date: 20110219
  Serious: Yes (Hospitalization)
  Sender: FDA-Public Use
  Company Number: US-B.I. PHARMACEUTICALS,INC./RIDGEFIELD-2010-BP-09482BP

PATIENT
  Sex: Female

DRUGS (2)
  1. DULCOLAX [Suspect]
     Indication: CONSTIPATION
     Dosage: 1 SUPP DAILY, PRN
     Route: 054
     Dates: start: 20100101
  2. PAIN MEDICATION [Concomitant]

REACTIONS (1)
  - INTERVERTEBRAL DISC PROTRUSION [None]
